FAERS Safety Report 11350863 (Version 2)
Quarter: 2015Q3

REPORT INFORMATION
  Report Type: Spontaneous
  Country: US (occurrence: US)
  Receive Date: 20150807
  Receipt Date: 20150824
  Transmission Date: 20151125
  Serious: No
  Sender: FDA-Public Use
  Company Number: US-JNJFOC-20150701144

PATIENT
  Age: 36 Year
  Sex: Male
  Weight: 80 kg

DRUGS (4)
  1. MENS ROGAINE EXTRA STRENGTH [Suspect]
     Active Substance: MINOXIDIL
     Route: 061
  2. MENS ROGAINE EXTRA STRENGTH [Suspect]
     Active Substance: MINOXIDIL
     Indication: ALOPECIA
     Dosage: FOLLOWED DIRECTIONS.
     Route: 061
  3. MENS ROGAINE EXTRA STRENGTH [Suspect]
     Active Substance: MINOXIDIL
     Route: 061
  4. MENS ROGAINE EXTRA STRENGTH [Suspect]
     Active Substance: MINOXIDIL
     Indication: ALOPECIA
     Dosage: FOLLOWED DIRECTIONS.
     Route: 061

REACTIONS (4)
  - Alopecia [Unknown]
  - Inappropriate schedule of drug administration [Unknown]
  - Drug administered at inappropriate site [Unknown]
  - Drug effect decreased [Unknown]
